FAERS Safety Report 7680793-0 (Version None)
Quarter: 2011Q3

REPORT INFORMATION
  Report Type: 
  Country: None (occurrence: None)
  Receive Date: 20110812
  Receipt Date: 20110808
  Transmission Date: 20111222
  Serious: Yes (Other)
  Sender: FDA-Public Use
  Company Number: GB-MERCK-1108GBR00059

PATIENT
  Age: 75 Year
  Sex: Female

DRUGS (2)
  1. COZAAR [Suspect]
     Route: 048
  2. ZOCOR [Suspect]
     Route: 048
     Dates: start: 20080101

REACTIONS (6)
  - SMALL INTESTINE CARCINOMA [None]
  - DIABETES MELLITUS [None]
  - DEPRESSED MOOD [None]
  - HYPERSENSITIVITY [None]
  - CARDIAC DISORDER [None]
  - RASH [None]
